FAERS Safety Report 25782366 (Version 3)
Quarter: 2025Q4

REPORT INFORMATION
  Report Type: Spontaneous
  Country: US (occurrence: US)
  Receive Date: 20250909
  Receipt Date: 20251121
  Transmission Date: 20260118
  Serious: Yes (Other)
  Sender: BRISTOL-MYERS SQUIBB COMPANY
  Company Number: US-BRISTOL-MYERS SQUIBB COMPANY-2025-124544

PATIENT
  Age: 75 Year
  Sex: Female
  Weight: 63.96 kg

DRUGS (2)
  1. REVLIMID [Suspect]
     Active Substance: LENALIDOMIDE
     Indication: Plasma cell myeloma
     Dosage: DAILY FOR 21 DAYS ON, THEN 7 DAYS OFF EVERY 28-DAYS
     Route: 048
     Dates: start: 202502
  2. REVLIMID [Suspect]
     Active Substance: LENALIDOMIDE
     Dosage: REVLIMID 10MG CAPSULE ORALLY ONCE DAILY
     Route: 048

REACTIONS (3)
  - Poor peripheral circulation [Unknown]
  - Neuropathy peripheral [Recovering/Resolving]
  - Constipation [Recovering/Resolving]
